FAERS Safety Report 8076892-4 (Version None)
Quarter: 2012Q1

REPORT INFORMATION
  Report Type: 
  Country: None (occurrence: None)
  Receive Date: 20120127
  Receipt Date: 20120113
  Transmission Date: 20120608
  Serious: Yes (Other)
  Sender: FDA-Public Use
  Company Number: PHFR2012GB000694

PATIENT
  Age: 37 Year
  Sex: Male

DRUGS (1)
  1. TEGRETOL [Suspect]
     Indication: EPILEPSY
     Dosage: 200 MG, UNK
     Route: 048

REACTIONS (6)
  - MALAISE [None]
  - YELLOW SKIN [None]
  - EYE INFECTION [None]
  - COUGH [None]
  - CONVULSION [None]
  - RASH [None]
